FAERS Safety Report 17468141 (Version 1)
Quarter: 2020Q1

REPORT INFORMATION
  Report Type: Spontaneous
  Country: DE (occurrence: DE)
  Receive Date: 20200227
  Receipt Date: 20200227
  Transmission Date: 20200409
  Serious: Yes (Hospitalization, Other)
  Sender: FDA-Public Use
  Company Number: DE-009507513-2004-09-1076

PATIENT
  Age: 58 Year
  Sex: Male
  Weight: 66 kg

DRUGS (6)
  1. REBETOL [Suspect]
     Active Substance: RIBAVIRIN
     Dosage: DOSE: 1GM-800MG QD, DURATION: 12 MONTH(S)
     Route: 048
     Dates: start: 200306, end: 200406
  2. PEGINTRON [Suspect]
     Active Substance: PEGINTERFERON ALFA-2B
     Indication: CHRONIC HEPATITIS C
     Dosage: DOSE: 80 MCG QW, DURATION: 3 MONTH(S)
     Route: 058
     Dates: start: 200306, end: 200309
  3. REBETOL [Suspect]
     Active Substance: RIBAVIRIN
     Indication: CHRONIC HEPATITIS C
     Dosage: DOSE: 1000 MG QD, DURATION: 3 MONTH(S)
     Route: 048
     Dates: start: 200306, end: 200309
  4. PEGINTRON [Suspect]
     Active Substance: PEGINTERFERON ALFA-2B
     Dosage: DOSE: 70 MCG QW, DURATION: 9 MONTH(S)
     Route: 058
     Dates: start: 200309, end: 200406
  5. PEGINTRON [Suspect]
     Active Substance: PEGINTERFERON ALFA-2B
     Dosage: DOSE: 80-70 MCG QW,DURATION: 12 MONTH(S)
     Route: 058
     Dates: start: 200306, end: 200406
  6. REBETOL [Suspect]
     Active Substance: RIBAVIRIN
     Dosage: DOSE: 800 MG QD, DURATION: 9 MONTH(S)
     Route: 048
     Dates: start: 200309, end: 200406

REACTIONS (1)
  - Pneumonitis [Recovered/Resolved with Sequelae]

NARRATIVE: CASE EVENT DATE: 20040611
